FAERS Safety Report 10046007 (Version 1)
Quarter: 2014Q1

REPORT INFORMATION
  Report Type: Spontaneous
  Country: US (occurrence: US)
  Receive Date: 20140330
  Receipt Date: 20140330
  Transmission Date: 20141002
  Serious: Yes (Disabling)
  Sender: FDA-Public Use
  Company Number: US-GE HEALTHCARE MEDICAL DIAGNOSTICS-OSCN-PR-0912S-0520

PATIENT
  Age: 51 Year
  Sex: Female

DRUGS (9)
  1. OMNISCAN [Suspect]
     Indication: CONVULSION
     Route: 042
     Dates: start: 20040601, end: 20040601
  2. OMNISCAN [Suspect]
     Indication: LEUKOENCEPHALOPATHY
     Route: 042
     Dates: start: 20040706, end: 20040706
  3. OMNISCAN [Suspect]
     Indication: CEREBRAL INFARCTION
     Route: 042
     Dates: start: 20041223, end: 20041223
  4. OMNISCAN [Suspect]
     Indication: CEREBRAL INFARCTION
     Route: 042
     Dates: start: 20050108, end: 20050108
  5. OMNISCAN [Suspect]
     Indication: MENTAL STATUS CHANGES
     Route: 042
     Dates: start: 20050227, end: 20050227
  6. MAGNEVIST [Suspect]
     Indication: PRODUCT USED FOR UNKNOWN INDICATION
     Route: 042
     Dates: start: 20060629, end: 20060629
  7. EPOGEN [Concomitant]
  8. CYTOXAN [Concomitant]
  9. IRON [Concomitant]

REACTIONS (1)
  - Nephrogenic systemic fibrosis [Not Recovered/Not Resolved]
